FAERS Safety Report 12818529 (Version 1)
Quarter: 2016Q4

REPORT INFORMATION
  Report Type: Spontaneous
  Country: US (occurrence: US)
  Receive Date: 20161005
  Receipt Date: 20161005
  Transmission Date: 20170207
  Serious: Yes (Other)
  Sender: FDA-Public Use
  Company Number: US-BRISTOL-MYERS SQUIBB COMPANY-BMS-2016-080758

PATIENT
  Sex: Male

DRUGS (1)
  1. OPDIVO [Suspect]
     Active Substance: NIVOLUMAB
     Indication: NON-SMALL CELL LUNG CANCER
     Dosage: NOT PROVIDED
     Route: 042
     Dates: start: 20151102

REACTIONS (6)
  - Surgery [Unknown]
  - Hepatic enzyme increased [Unknown]
  - Creatinine renal clearance abnormal [Unknown]
  - Pneumothorax spontaneous [Unknown]
  - Emphysema [Unknown]
  - Appendicitis [Unknown]
